FAERS Safety Report 9746529 (Version 1)
Quarter: 2013Q4

REPORT INFORMATION
  Report Type: Spontaneous
  Country: US (occurrence: None)
  Receive Date: 20131209
  Receipt Date: 20131209
  Transmission Date: 20140711
  Serious: No
  Sender: FDA-Public Use
  Company Number: None

PATIENT
  Age: 53 Year
  Sex: Female

DRUGS (8)
  1. PROAIR [Suspect]
     Indication: CHRONIC OBSTRUCTIVE PULMONARY DISEASE
     Dosage: OCTOBER +BEFORE, 2 PUFFSM EVERY 4-6 HOURS, ORAL INHAL
     Route: 055
  2. PROAIR [Suspect]
     Indication: BRONCHOSPASM
     Dosage: OCTOBER +BEFORE, 2 PUFFSM EVERY 4-6 HOURS, ORAL INHAL
     Route: 055
  3. SYMBICORT HFA [Concomitant]
  4. ATROVENT HFA [Concomitant]
  5. SPIRIVA [Concomitant]
  6. IPATROPIUM [Concomitant]
  7. ALBUTELOL [Concomitant]
  8. OALIRESPTAS [Concomitant]

REACTIONS (1)
  - Drug ineffective [None]
